FAERS Safety Report 5513216-8 (Version None)
Quarter: 2007Q4

REPORT INFORMATION
  Report Type: 
  Country: None (occurrence: None)
  Receive Date: 20071112
  Receipt Date: 20071105
  Transmission Date: 20080405
  Serious: Yes (Hospitalization)
  Sender: FDA-Public Use
  Company Number: FR-ASTRAZENECA-2007CG01557

PATIENT
  Age: 21163 Day
  Sex: Female

DRUGS (7)
  1. INEXIUM [Suspect]
     Route: 048
     Dates: end: 20070328
  2. CELLCEPT [Suspect]
     Route: 048
     Dates: end: 20070328
  3. ZELITREX [Suspect]
     Route: 048
     Dates: end: 20070328
  4. ZELITREX [Suspect]
     Route: 048
     Dates: start: 20070329
  5. BACTRIM [Concomitant]
     Route: 048
     Dates: end: 20070328
  6. PROGRAF [Concomitant]
     Route: 048
  7. CORTANCYL [Concomitant]
     Route: 048

REACTIONS (2)
  - CYTOLYTIC HEPATITIS [None]
  - LEUKOPENIA [None]
